FAERS Safety Report 9449053 (Version 2)
Quarter: 2013Q3

REPORT INFORMATION
  Report Type: Spontaneous
  Country: US (occurrence: US)
  Receive Date: 20130808
  Receipt Date: 20130823
  Transmission Date: 20140515
  Serious: Yes (Hospitalization)
  Sender: FDA-Public Use
  Company Number: GXBR2013US001514

PATIENT
  Age: 42 Year
  Sex: Female

DRUGS (2)
  1. TACROLIMUS [Suspect]
     Indication: HEART TRANSPLANT
     Dosage: 5 MG, BID
     Route: 048
  2. MYFORTIC [Concomitant]
     Dosage: 720 MG, BID

REACTIONS (1)
  - Heart transplant rejection [Unknown]
